FAERS Safety Report 4280216-8 (Version None)
Quarter: 2004Q1

REPORT INFORMATION
  Report Type: 
  Country: None (occurrence: None)
  Receive Date: 20040128
  Receipt Date: 20040114
  Transmission Date: 20041129
  Serious: Yes (Hospitalization)
  Sender: FDA-Public Use
  Company Number: PHBS2004IL00959

PATIENT
  Age: 48 Year
  Sex: Female

DRUGS (5)
  1. DEFEROXAMINE [Suspect]
     Indication: THALASSAEMIA BETA
     Route: 065
  2. RED BLOOD CELLS [Concomitant]
     Dosage: 1 UNIT EVERY 3 WEEKS
  3. CALCIUM [Concomitant]
  4. VITAMIN D [Concomitant]
  5. ENALAPRIL MALEATE [Concomitant]

REACTIONS (34)
  - ACUTE MYOCARDIAL INFARCTION [None]
  - ANTITHROMBIN III DECREASED [None]
  - ATRIAL FIBRILLATION [None]
  - ATRIAL HYPERTROPHY [None]
  - BLOOD CREATINE PHOSPHOKINASE INCREASED [None]
  - BRADYCARDIA [None]
  - CARDIAC MURMUR [None]
  - CHEST PAIN [None]
  - COLD SWEAT [None]
  - CRACKLES LUNG [None]
  - DYSPNOEA [None]
  - DYSPNOEA EXERTIONAL [None]
  - ELECTROCARDIOGRAM ST SEGMENT ELEVATION [None]
  - FATIGUE [None]
  - FEELING COLD [None]
  - HAEMOGLOBIN DECREASED [None]
  - HEPATIC FUNCTION ABNORMAL [None]
  - HYPERHIDROSIS [None]
  - HYPOTENSION [None]
  - MITRAL VALVE INCOMPETENCE [None]
  - MITRAL VALVE STENOSIS [None]
  - ORTHOPNOEA [None]
  - PLATELET COUNT INCREASED [None]
  - PROTEIN C DECREASED [None]
  - PROTEIN S DECREASED [None]
  - PULMONARY HYPERTENSION [None]
  - RHEUMATIC HEART DISEASE [None]
  - VENOUS PRESSURE JUGULAR INCREASED [None]
  - VENTRICULAR FAILURE [None]
  - VENTRICULAR HYPOKINESIA [None]
  - VENTRICULAR TACHYCARDIA [None]
  - VOMITING [None]
  - WHITE BLOOD CELL COUNT ABNORMAL [None]
  - WHITE BLOOD CELL COUNT INCREASED [None]
